FAERS Safety Report 8221947-4 (Version None)
Quarter: 2012Q1

REPORT INFORMATION
  Report Type: 
  Country: None (occurrence: None)
  Receive Date: 20120320
  Receipt Date: 20120316
  Transmission Date: 20120608
  Serious: Yes (Life-Threatening, Hospitalization)
  Sender: FDA-Public Use
  Company Number: US-B.I. PHARMACEUTICALS,INC./RIDGEFIELD-2012-BP-03448BP

PATIENT
  Sex: Female

DRUGS (21)
  1. PRADAXA [Suspect]
     Indication: ATRIAL FIBRILLATION
     Dosage: 300 MG
     Route: 048
     Dates: start: 20110722, end: 20120216
  2. AMBIEN [Concomitant]
     Indication: INSOMNIA
     Route: 048
  3. OXYCODONE HCL [Concomitant]
     Indication: ARTHRALGIA
     Route: 048
  4. VENTOLIN [Concomitant]
     Indication: CHRONIC OBSTRUCTIVE PULMONARY DISEASE
     Route: 055
  5. FISH OIL [Concomitant]
     Indication: PROPHYLAXIS
     Dosage: 4800 MG
     Route: 048
  6. THYROID TAB [Concomitant]
     Dosage: 90 MG
     Route: 048
  7. MOVE FREE [Concomitant]
     Indication: PROPHYLAXIS
     Route: 048
  8. SPIRIVA [Concomitant]
     Dosage: 18 MCG
     Route: 055
  9. LISINOPRIL [Concomitant]
     Indication: HYPERTENSION
     Route: 048
  10. ELMIRON [Concomitant]
     Indication: URINARY TRACT DISORDER
     Dosage: 300 MG
     Route: 048
  11. ESTRADIOL [Concomitant]
     Indication: HORMONE LEVEL ABNORMAL
     Dosage: 0.25 MG
     Route: 048
  12. NEXIUM [Concomitant]
     Dosage: 40 MG
     Route: 048
  13. CELEBREX [Concomitant]
     Indication: ARTHRALGIA
     Dosage: 200 MG
     Route: 048
  14. CO Q10 [Concomitant]
     Indication: PROPHYLAXIS
     Dosage: 100 MG
     Route: 048
  15. FREEZ-DRIED STINGING NETTLES [Concomitant]
     Indication: HYPERSENSITIVITY
  16. ADVAIR DISKUS 100/50 [Concomitant]
     Dosage: 2 PUF
     Route: 055
  17. MULTAQ [Concomitant]
     Indication: CARDIAC DISORDER
     Dosage: 800 MG
     Route: 048
  18. CALCIUM/MAGNESIUM + VITAMIN D [Concomitant]
     Indication: PROPHYLAXIS
     Route: 048
  19. TRAZODONE HCL [Concomitant]
     Dosage: 50 MG
     Route: 048
  20. PREMARIN [Concomitant]
     Route: 061
  21. ATENOLOL [Concomitant]
     Indication: HYPERTENSION
     Dosage: 12.5 MG
     Route: 048

REACTIONS (2)
  - ABDOMINAL PAIN [None]
  - SPLENIC RUPTURE [None]
